FAERS Safety Report 24440586 (Version 1)
Quarter: 2024Q4

REPORT INFORMATION
  Report Type: Spontaneous
  Country: FR (occurrence: FR)
  Receive Date: 20241016
  Receipt Date: 20241016
  Transmission Date: 20250114
  Serious: Yes (Other)
  Sender: CELLTRION
  Company Number: FR-CELLTRION INC.-2024FR023488

PATIENT

DRUGS (7)
  1. INFLIXIMAB [Suspect]
     Active Substance: INFLIXIMAB
     Indication: Sarcoidosis
     Dosage: 535 MG
     Route: 042
     Dates: start: 202108
  2. INFLIXIMAB [Suspect]
     Active Substance: INFLIXIMAB
     Dosage: 535 MG
     Route: 042
     Dates: start: 20240920
  3. ENOXAPARIN [Concomitant]
     Active Substance: ENOXAPARIN
  4. ALFUZOSIN [Concomitant]
     Active Substance: ALFUZOSIN
  5. DULOXETINE [Concomitant]
     Active Substance: DULOXETINE
  6. TRAMADOL [Concomitant]
     Active Substance: TRAMADOL
  7. ACETAMINOPHEN [Concomitant]
     Active Substance: ACETAMINOPHEN
     Dosage: IF NECESSARY

REACTIONS (6)
  - Ill-defined disorder [Recovered/Resolved]
  - Headache [Recovered/Resolved]
  - Chest discomfort [Recovered/Resolved]
  - Pain [Recovered/Resolved]
  - Hypersensitivity [Unknown]
  - Intentional product use issue [Unknown]

NARRATIVE: CASE EVENT DATE: 20240920
